FAERS Safety Report 7676850-5 (Version None)
Quarter: 2011Q3

REPORT INFORMATION
  Report Type: 
  Country: None (occurrence: None)
  Receive Date: 20110811
  Receipt Date: 20110810
  Transmission Date: 20111222
  Serious: Yes (Hospitalization, Other)
  Sender: FDA-Public Use
  Company Number: JP-PFIZER INC-2011134663

PATIENT
  Age: 79 Year
  Sex: Male
  Weight: 40 kg

DRUGS (10)
  1. AMITRIPTYLINE HCL [Interacting]
     Indication: POST HERPETIC NEURALGIA
     Dosage: 10 MG, 3X/DAY
     Route: 048
     Dates: start: 20101101, end: 20101115
  2. FAMOTIDINE [Concomitant]
     Indication: GASTRIC ULCER
     Dosage: 20 MG, 2X/DAY
     Route: 048
     Dates: start: 20100112
  3. ALLEGRA [Concomitant]
     Indication: RHINITIS ALLERGIC
     Dosage: 60 MG, 2X/DAY
     Route: 048
     Dates: start: 20100112
  4. SPIRIVA [Concomitant]
     Indication: CHRONIC OBSTRUCTIVE PULMONARY DISEASE
     Dosage: 18 UG, 1X/DAY
     Route: 050
     Dates: start: 20100112
  5. ONE-ALPHA [Concomitant]
     Indication: OSTEOPOROSIS
     Dosage: 1 UG, 1X/DAY
     Route: 048
     Dates: start: 20100112
  6. TULOBUTEROL [Concomitant]
     Indication: CHRONIC OBSTRUCTIVE PULMONARY DISEASE
     Dosage: 2 MG, 1X/DAY
     Route: 062
     Dates: start: 20100112
  7. ALENDRONATE SODIUM [Concomitant]
     Indication: OSTEOPOROSIS
     Dosage: 5 MG, 1X/DAY
     Route: 048
     Dates: start: 20100112
  8. ARICEPT [Concomitant]
     Indication: DEMENTIA
     Dosage: 5 MG, 1X/DAY
     Route: 048
     Dates: start: 20100112
  9. LYRICA [Suspect]
     Indication: POST HERPETIC NEURALGIA
     Dosage: 150 MG, 2X/DAY
     Route: 048
     Dates: start: 20101101, end: 20101115
  10. HOKUNALIN [Concomitant]
     Dosage: 2 MG DAILY
     Route: 062

REACTIONS (2)
  - DRUG INTERACTION [None]
  - SYNCOPE [None]
